FAERS Safety Report 16558708 (Version 2)
Quarter: 2019Q4

REPORT INFORMATION
  Report Type: Spontaneous
  Country: GB (occurrence: GB)
  Receive Date: 20190711
  Receipt Date: 20191101
  Transmission Date: 20200122
  Serious: Yes (Other)
  Sender: FDA-Public Use
  Company Number: GB-JNJFOC-20190707616

PATIENT
  Sex: Female
  Weight: 113 kg

DRUGS (1)
  1. SIMPONI [Suspect]
     Active Substance: GOLIMUMAB
     Indication: PSORIATIC ARTHROPATHY
     Dosage: STRENGTH: 100 MG/1ML
     Route: 058

REACTIONS (2)
  - Nasopharyngitis [Unknown]
  - Carpal tunnel syndrome [Unknown]
